FAERS Safety Report 8590598-4 (Version None)
Quarter: 2012Q3

REPORT INFORMATION
  Report Type: 
  Country: None (occurrence: None)
  Receive Date: 20120813
  Receipt Date: 20120808
  Transmission Date: 20120928
  Serious: Yes (Other)
  Sender: FDA-Public Use
  Company Number: US-PFIZER INC-2012193814

PATIENT
  Age: 52 Year
  Sex: Male

DRUGS (2)
  1. GEODON [Suspect]
     Dosage: 40 MG, 3X/DAY
  2. ASPIRIN [Concomitant]
     Dosage: 81 MG, UNK

REACTIONS (15)
  - CENTRAL NERVOUS SYSTEM NEOPLASM [None]
  - VASCULITIS [None]
  - SENSORY DISTURBANCE [None]
  - HEADACHE [None]
  - BRAIN NEOPLASM MALIGNANT [None]
  - HEMIPARESIS [None]
  - HYPOREFLEXIA [None]
  - MEMORY IMPAIRMENT [None]
  - VERTIGO CNS ORIGIN [None]
  - HEMIPLEGIA [None]
  - ENCEPHALOPATHY [None]
  - ARTERITIS [None]
  - GAIT DISTURBANCE [None]
  - DIZZINESS [None]
  - HYPOACUSIS [None]
